FAERS Safety Report 5042968-9 (Version None)
Quarter: 2006Q2

REPORT INFORMATION
  Report Type: 
  Country: None (occurrence: None)
  Receive Date: 20060628
  Receipt Date: 20060619
  Transmission Date: 20061013
  Serious: Yes (Hospitalization)
  Sender: FDA-Public Use
  Company Number: TPA2006A00895

PATIENT
  Age: 47 Year
  Sex: Female
  Weight: 99.7913 kg

DRUGS (9)
  1. ACTOS [Suspect]
     Indication: DIABETES MELLITUS NON-INSULIN-DEPENDENT
     Dosage: 45 MG, 1 IN 1 D, PER ORAL
     Route: 048
     Dates: start: 20000101, end: 20030101
  2. ACTOS [Suspect]
     Indication: DIABETES MELLITUS NON-INSULIN-DEPENDENT
     Dosage: 45 MG, 1 IN 1 D, PER ORAL
     Route: 048
     Dates: start: 20060108
  3. VYTORIN (SIMVASTATIN, EZETIMIBE) [Concomitant]
  4. CYMBALTA [Concomitant]
  5. KLONOPIN [Concomitant]
  6. NEURONTIN [Concomitant]
  7. CELEXA [Concomitant]
  8. FLEXERIL [Concomitant]
  9. IRON (IRON) [Concomitant]

REACTIONS (4)
  - GASTRIC BYPASS [None]
  - NASOPHARYNGITIS [None]
  - TREATMENT NONCOMPLIANCE [None]
  - WEIGHT INCREASED [None]
